FAERS Safety Report 4448654-8 (Version None)
Quarter: 2004Q3

REPORT INFORMATION
  Report Type: 
  Country: None (occurrence: None)
  Receive Date: 20040909
  Receipt Date: 20020808
  Transmission Date: 20050211
  Serious: Yes (Death)
  Sender: FDA-Public Use
  Company Number: TCI2001A00136

PATIENT
  Age: 64 Year
  Sex: Male

DRUGS (7)
  1. ACTOS [Suspect]
     Indication: DIABETES MELLITUS
     Dosage: SEE IMAGE
     Route: 048
     Dates: start: 20001102, end: 20001108
  2. ACTOS [Suspect]
     Indication: DIABETES MELLITUS
     Dosage: SEE IMAGE
     Route: 048
     Dates: start: 20001109, end: 20001227
  3. LISINOPRIL [Concomitant]
  4. BEZAFIBRATE [Concomitant]
  5. DOXAZOSIN MESYLATE [Concomitant]
  6. AMLODIPINE BESYLATE [Concomitant]
  7. FAMOTIDINE [Concomitant]

REACTIONS (17)
  - ARTHRALGIA [None]
  - CARDIO-RESPIRATORY ARREST [None]
  - COMA [None]
  - DEPRESSED LEVEL OF CONSCIOUSNESS [None]
  - DISSEMINATED INTRAVASCULAR COAGULATION [None]
  - GASTRIC CANCER STAGE IV WITH METASTASES [None]
  - GASTRIC HAEMORRHAGE [None]
  - HYPERCALCAEMIA OF MALIGNANCY [None]
  - LUNG NEOPLASM MALIGNANT [None]
  - METASTASES TO LUNG [None]
  - PANCREATIC CARCINOMA [None]
  - PANCREATITIS [None]
  - PARATHYROID HORMONE-RELATED PROTEIN INCREASED [None]
  - PERIARTHRITIS [None]
  - RENAL FAILURE [None]
  - RESUSCITATION [None]
  - THERAPY NON-RESPONDER [None]
